FAERS Safety Report 24956952 (Version 2)
Quarter: 2025Q1

REPORT INFORMATION
  Report Type: Spontaneous
  Country: CN (occurrence: CN)
  Receive Date: 20250211
  Receipt Date: 20250214
  Transmission Date: 20250409
  Serious: Yes (Hospitalization)
  Sender: PFIZER
  Company Number: CN-PFIZER INC-PV202500015403

PATIENT
  Age: 84 Year
  Sex: Male
  Weight: 60 kg

DRUGS (6)
  1. TIGECYCLINE [Suspect]
     Active Substance: TIGECYCLINE
     Indication: Pneumonia klebsiella
     Dosage: 50 MG, 2X/DAY
     Route: 041
     Dates: start: 20241115, end: 20241129
  2. VORICONAZOLE [Suspect]
     Active Substance: VORICONAZOLE
     Indication: Pneumonia fungal
     Dosage: 0.2 G, 2X/DAY
     Route: 048
     Dates: start: 20241119, end: 20241124
  3. VORICONAZOLE [Suspect]
     Active Substance: VORICONAZOLE
     Indication: Aspergillus infection
     Dosage: 0.2 G, 1X/DAY
     Route: 048
     Dates: start: 20241125, end: 20241129
  4. VORICONAZOLE [Suspect]
     Active Substance: VORICONAZOLE
     Indication: Candida infection
  5. GANCICLOVIR [Suspect]
     Active Substance: GANCICLOVIR
     Indication: Cytomegalovirus infection
     Dosage: 0.125 G, 1X/DAY
     Route: 041
     Dates: start: 20241121, end: 20241125
  6. GANCICLOVIR [Suspect]
     Active Substance: GANCICLOVIR
     Indication: Cytomegalovirus infection
     Dosage: 0.5 G, 1X/DAY
     Route: 048
     Dates: start: 20241125

REACTIONS (2)
  - Chronic kidney disease [Unknown]
  - Off label use [Unknown]

NARRATIVE: CASE EVENT DATE: 20241123
